FAERS Safety Report 17043118 (Version 2)
Quarter: 2019Q4

REPORT INFORMATION
  Report Type: Spontaneous
  Country: US (occurrence: US)
  Receive Date: 20191118
  Receipt Date: 20191216
  Transmission Date: 20200122
  Serious: No
  Sender: FDA-Public Use
  Company Number: US-PFIZER INC-2019494689

PATIENT
  Age: 60 Year
  Sex: Female

DRUGS (1)
  1. CHANTIX [Suspect]
     Active Substance: VARENICLINE TARTRATE
     Indication: SMOKING CESSATION THERAPY
     Dosage: 1 MG, 2X/DAY
     Route: 048

REACTIONS (8)
  - Insomnia [Unknown]
  - Stress [Unknown]
  - Anxiety [Not Recovered/Not Resolved]
  - Aggression [Unknown]
  - Mood swings [Unknown]
  - Abnormal behaviour [Unknown]
  - Memory impairment [Unknown]
  - Weight increased [Unknown]
